FAERS Safety Report 11375266 (Version 2)
Quarter: 2017Q2

REPORT INFORMATION
  Report Type: Spontaneous
  Country: US (occurrence: US)
  Receive Date: 20150813
  Receipt Date: 20170501
  Transmission Date: 20170829
  Serious: Yes (Other)
  Sender: FDA-Public Use
  Company Number: US-JUBILANT CADISTA PHARMACEUTICALS-2015JUB00244

PATIENT
  Age: 60 Year
  Sex: Female
  Weight: 52.61 kg

DRUGS (4)
  1. PREBIOTICS [Concomitant]
  2. PROBIOTICS [Concomitant]
     Active Substance: PROBIOTICS NOS
  3. METHYLPREDNISOLONE TABLETS USP 4 MG [Suspect]
     Active Substance: METHYLPREDNISOLONE
     Indication: PROCEDURAL PAIN
     Dosage: 24 MG, ONCE
     Route: 048
     Dates: start: 20150522, end: 20150522
  4. METHYLPREDNISOLONE TABLETS USP 4 MG [Suspect]
     Active Substance: METHYLPREDNISOLONE
     Dosage: 4 MG, ONCE
     Route: 048
     Dates: start: 20150523, end: 20150523

REACTIONS (19)
  - Diarrhoea [Recovered/Resolved]
  - Back pain [Unknown]
  - Chills [Unknown]
  - Weight decreased [Recovering/Resolving]
  - Withdrawal syndrome [Recovered/Resolved]
  - Pyrexia [Unknown]
  - Pollakiuria [Recovering/Resolving]
  - Abdominal pain upper [Recovering/Resolving]
  - Sensory disturbance [Unknown]
  - Surgery [Unknown]
  - Blood potassium decreased [Unknown]
  - Visual impairment [Unknown]
  - Nausea [Recovering/Resolving]
  - Dehydration [Unknown]
  - Asthenia [Recovering/Resolving]
  - Agitation [Recovered/Resolved]
  - Decreased appetite [Recovering/Resolving]
  - Gastrointestinal disorder [Recovered/Resolved]
  - Frequent bowel movements [Unknown]

NARRATIVE: CASE EVENT DATE: 2015
